FAERS Safety Report 18661561 (Version 2)
Quarter: 2021Q2

REPORT INFORMATION
  Report Type: Spontaneous
  Country: US (occurrence: US)
  Receive Date: 20201224
  Receipt Date: 20210428
  Transmission Date: 20210717
  Serious: Yes (Other)
  Sender: FDA-Public Use
  Company Number: US-SA-2020SA362991

PATIENT
  Age: 47 Year
  Sex: Female
  Weight: 69.84 kg

DRUGS (1)
  1. DOCETAXEL. [Suspect]
     Active Substance: DOCETAXEL
     Dosage: 181 MG, Q3W
     Dates: start: 20150416, end: 20150730

REACTIONS (1)
  - Alopecia [Not Recovered/Not Resolved]
